FAERS Safety Report 25839286 (Version 1)
Quarter: 2025Q3

REPORT INFORMATION
  Report Type: Spontaneous
  Country: EU (occurrence: EU)
  Receive Date: 20250924
  Receipt Date: 20250924
  Transmission Date: 20251021
  Serious: Yes (Hospitalization, Other)
  Sender: BRISTOL-MYERS SQUIBB COMPANY
  Company Number: None

PATIENT
  Age: 66 Year
  Sex: Female
  Weight: 84 kg

DRUGS (3)
  1. OPDIVO [Suspect]
     Active Substance: NIVOLUMAB
     Indication: Neuroendocrine carcinoma
     Dates: start: 20250212, end: 20250521
  2. OPDIVO [Suspect]
     Active Substance: NIVOLUMAB
     Dates: start: 20250612, end: 20250806
  3. YERVOY [Suspect]
     Active Substance: IPILIMUMAB
     Indication: Neuroendocrine carcinoma
     Dates: start: 20250212, end: 20250416

REACTIONS (1)
  - Immune-mediated cystitis [Not Recovered/Not Resolved]

NARRATIVE: CASE EVENT DATE: 20250501
